FAERS Safety Report 25716391 (Version 2)
Quarter: 2025Q3

REPORT INFORMATION
  Report Type: Spontaneous
  Country: GB (occurrence: GB)
  Receive Date: 20250822
  Receipt Date: 20250917
  Transmission Date: 20251020
  Serious: Yes (Hospitalization)
  Sender: MYLAN
  Company Number: GB-MYLANLABS-2025M1070414

PATIENT
  Sex: Male

DRUGS (2)
  1. CLOZARIL [Suspect]
     Active Substance: CLOZAPINE
     Indication: Schizophrenia
     Dates: start: 20220719, end: 20250811
  2. CLOZARIL [Suspect]
     Active Substance: CLOZAPINE

REACTIONS (3)
  - Drug use disorder [Unknown]
  - Abnormal behaviour [Unknown]
  - Treatment noncompliance [Unknown]
